FAERS Safety Report 5294916-4 (Version None)
Quarter: 2007Q2

REPORT INFORMATION
  Report Type: 
  Country: None (occurrence: None)
  Receive Date: 20070412
  Receipt Date: 20070330
  Transmission Date: 20071010
  Serious: Yes (Other)
  Sender: FDA-Public Use
  Company Number: PHEH2007US03790

PATIENT
  Age: 52 Year
  Sex: Female

DRUGS (3)
  1. GLEEVEC [Suspect]
     Indication: CHRONIC MYELOID LEUKAEMIA
     Dosage: 400 MG, QD
     Route: 048
     Dates: start: 20031101
  2. CELEXA [Concomitant]
     Dosage: 20 MG, QD
     Route: 048
  3. VITAMIN CAP [Concomitant]
     Dosage: 1 DF, QD
     Route: 048

REACTIONS (2)
  - ANAEMIA [None]
  - OSTEOSCLEROSIS [None]
